FAERS Safety Report 8564668-0 (Version None)
Quarter: 2012Q3

REPORT INFORMATION
  Report Type: 
  Country: None (occurrence: None)
  Receive Date: 20120803
  Receipt Date: 20120720
  Transmission Date: 20120928
  Serious: Yes (Hospitalization, Other)
  Sender: FDA-Public Use
  Company Number: US-JNJFOC-20120714029

PATIENT
  Sex: Female
  Weight: 54.43 kg

DRUGS (7)
  1. FENTANYL-100 [Suspect]
     Dosage: ADDED 25UG/HR AS NEEDED AS PRESCRIBED
     Route: 062
     Dates: start: 20100101
  2. BENTYL [Concomitant]
     Indication: CROHN'S DISEASE
     Route: 048
     Dates: start: 19980101
  3. REMICADE [Concomitant]
     Indication: CROHN'S DISEASE
     Dosage: 3 VIALS
     Route: 042
     Dates: start: 20120717
  4. PREDNISONE [Concomitant]
     Indication: CROHN'S DISEASE
     Route: 048
  5. FENTANYL-100 [Suspect]
     Indication: PAIN
     Route: 062
     Dates: start: 20070101
  6. FENTANYL-100 [Suspect]
     Indication: PRODUCT USED FOR UNKNOWN INDICATION
     Route: 062
     Dates: start: 20070101
  7. MOTRIN [Concomitant]
     Indication: PAIN
     Route: 048

REACTIONS (4)
  - PAIN [None]
  - PRODUCT QUALITY ISSUE [None]
  - CROHN'S DISEASE [None]
  - WRONG TECHNIQUE IN DRUG USAGE PROCESS [None]
